FAERS Safety Report 7963560-X (Version None)
Quarter: 2011Q4

REPORT INFORMATION
  Report Type: 
  Country: None (occurrence: None)
  Receive Date: 20111208
  Receipt Date: 20111128
  Transmission Date: 20120403
  Serious: Yes (Hospitalization)
  Sender: FDA-Public Use
  Company Number: US-BAYER-2011-054389

PATIENT
  Age: 22 Year
  Sex: Female
  Weight: 74.83 kg

DRUGS (5)
  1. MOTRIN [Concomitant]
     Indication: PAIN
     Dosage: UNK UNK, PRN
  2. YAZ [Suspect]
     Indication: DYSMENORRHOEA
  3. FLAGYL [Concomitant]
  4. YAZ [Suspect]
     Indication: CONTRACEPTION
     Dosage: UNK
     Route: 048
     Dates: start: 20081125, end: 20090604
  5. METRONIDAZOLE [Concomitant]
     Indication: FUNGAL INFECTION
     Dosage: 500 MG, UNK
     Dates: start: 20090501

REACTIONS (1)
  - PULMONARY EMBOLISM [None]
